FAERS Safety Report 20412439 (Version 1)
Quarter: 2022Q1

REPORT INFORMATION
  Report Type: Spontaneous
  Country: US (occurrence: US)
  Receive Date: 20220201
  Receipt Date: 20220201
  Transmission Date: 20220423
  Serious: No
  Sender: FDA-Public Use
  Company Number: US-AZURITY PHARMACEUTICALS, INC.-2021AZY00102

PATIENT
  Sex: Male

DRUGS (1)
  1. FIRVANQ [Suspect]
     Active Substance: VANCOMYCIN HYDROCHLORIDE
     Dosage: UNK
     Dates: end: 202109

REACTIONS (2)
  - Faecal volume increased [Not Recovered/Not Resolved]
  - Unevaluable event [Not Recovered/Not Resolved]

NARRATIVE: CASE EVENT DATE: 20210101
